FAERS Safety Report 26108209 (Version 2)
Quarter: 2025Q4

REPORT INFORMATION
  Report Type: Report from Study
  Country: CA (occurrence: CA)
  Receive Date: 20251201
  Receipt Date: 20251203
  Transmission Date: 20260119
  Serious: Yes (Life-Threatening, Other)
  Sender: OTSUKA
  Company Number: CA-MMM-Otsuka-3IL9KWO2

PATIENT
  Age: 32 Year
  Sex: Male

DRUGS (1)
  1. TOLVAPTAN [Suspect]
     Active Substance: TOLVAPTAN
     Indication: Congenital cystic kidney disease
     Dosage: 60 MG, DAILY
     Dates: start: 20190603

REACTIONS (1)
  - Haemodynamic instability [Recovered/Resolved]

NARRATIVE: CASE EVENT DATE: 20250207
